FAERS Safety Report 17167956 (Version 2)
Quarter: 2019Q4

REPORT INFORMATION
  Report Type: Spontaneous
  Country: SE (occurrence: SE)
  Receive Date: 20191218
  Receipt Date: 20191220
  Transmission Date: 20200122
  Serious: Yes (Hospitalization)
  Sender: FDA-Public Use
  Company Number: SE-TEVA-2019-SE-1152683

PATIENT
  Age: 16 Year
  Sex: Female

DRUGS (3)
  1. OXASCAND [Suspect]
     Active Substance: OXAZEPAM
     Dosage: 125 MG
     Dates: start: 20181030, end: 20181030
  2. LERGIGAN (PROMETHAZINE HYDROCHLORIDE) [Suspect]
     Active Substance: PROMETHAZINE HYDROCHLORIDE
     Dosage: ^A JAR OF JELLY, NO MORE THAN 30, 25 MG^
     Route: 048
     Dates: start: 20181030, end: 20181030
  3. IPREN [Suspect]
     Active Substance: IBUPROFEN
     Dosage: 6 GRAM
     Route: 048
     Dates: start: 20181030, end: 20181030

REACTIONS (3)
  - Intentional overdose [Unknown]
  - Intentional self-injury [Unknown]
  - Depressed level of consciousness [Unknown]

NARRATIVE: CASE EVENT DATE: 20181030
